FAERS Safety Report 6095476-0 (Version None)
Quarter: 2009Q1

REPORT INFORMATION
  Report Type: 
  Country: None (occurrence: None)
  Receive Date: 20090227
  Receipt Date: 20080409
  Transmission Date: 20090719
  Serious: Yes (Hospitalization)
  Sender: FDA-Public Use
  Company Number: A0721896A

PATIENT
  Age: 42 Year
  Sex: Female

DRUGS (3)
  1. LAMICTAL [Suspect]
     Dosage: 1200MG THREE TIMES PER DAY
     Route: 048
     Dates: start: 20030401
  2. PHENOBARBITAL TAB [Concomitant]
  3. CARBATROL [Concomitant]

REACTIONS (1)
  - CONVULSION [None]
